FAERS Safety Report 5387579-0 (Version None)
Quarter: 2007Q3

REPORT INFORMATION
  Report Type: 
  Country: None (occurrence: None)
  Receive Date: 20070711
  Receipt Date: 20070629
  Transmission Date: 20080115
  Serious: Yes (Other)
  Sender: FDA-Public Use
  Company Number: GXKR2007GB05591

PATIENT
  Age: 24 Month

DRUGS (2)
  1. METHADONE HCL [Suspect]
     Dosage: TRANSPLACENTAL
     Route: 064
  2. CANNABIS (CANNABIS, CANNABIS SATIVA) [Suspect]
     Dosage: TRANSPLACENTAL
     Route: 064

REACTIONS (2)
  - CONGENITAL NYSTAGMUS [None]
  - DRUG EXPOSURE DURING PREGNANCY [None]
